FAERS Safety Report 6579640-X (Version None)
Quarter: 2010Q1

REPORT INFORMATION
  Report Type: 
  Country: None (occurrence: None)
  Receive Date: 20100212
  Receipt Date: 20100201
  Transmission Date: 20100710
  Serious: No
  Sender: FDA-Public Use
  Company Number: US-B.I. PHARMACEUTICALS,INC./RIDGEFIELD-2010-BP-01295BP

PATIENT
  Sex: Female

DRUGS (8)
  1. SPIRIVA [Suspect]
     Indication: CHRONIC OBSTRUCTIVE PULMONARY DISEASE
     Dosage: 18 MCG
     Route: 055
     Dates: start: 20100128
  2. ENALAPRIL MALEATE [Concomitant]
     Indication: HYPERTENSION
     Route: 048
  3. TRIAMTERENE [Concomitant]
     Indication: HYPERTENSION
     Route: 048
  4. POTASSIUM [Concomitant]
     Indication: BLOOD POTASSIUM DECREASED
     Dosage: 10 MEQ
     Route: 048
  5. LEVOTHYROXINE SODIUM [Concomitant]
     Indication: HYPOTHYROIDISM
     Route: 048
     Dates: start: 20050101
  6. PENTOXIFYLLINE [Concomitant]
     Indication: PERIPHERAL ARTERIAL OCCLUSIVE DISEASE
     Route: 048
     Dates: start: 19990101
  7. SIMVASTATIN [Concomitant]
     Indication: BLOOD CHOLESTEROL INCREASED
     Route: 048
     Dates: start: 20040101
  8. LORAZEPAM [Concomitant]
     Indication: ANXIETY
     Route: 048
     Dates: start: 20000101

REACTIONS (1)
  - DRUG INEFFECTIVE [None]
